FAERS Safety Report 20491019 (Version 1)
Quarter: 2022Q1

REPORT INFORMATION
  Report Type: Spontaneous
  Country: US (occurrence: None)
  Receive Date: 20220218
  Receipt Date: 20220218
  Transmission Date: 20220424
  Serious: Yes (Hospitalization)
  Sender: FDA-Public Use
  Company Number: None

PATIENT
  Age: 72 Year
  Sex: Female
  Weight: 53.5 kg

DRUGS (20)
  1. BAMLANIVIMAB [Suspect]
     Active Substance: BAMLANIVIMAB
     Indication: COVID-19
     Dosage: OTHER FREQUENCY : ONCE;?
     Route: 042
     Dates: start: 20210115, end: 20210115
  2. ALBUTEROL [Concomitant]
     Active Substance: ALBUTEROL
     Dates: start: 20200129, end: 20210914
  3. ALPRAZOLAM [Concomitant]
     Active Substance: ALPRAZOLAM
     Dates: start: 20180423
  4. BECLOMETHASONE DIPROPIONATE [Concomitant]
     Active Substance: BECLOMETHASONE DIPROPIONATE
     Dates: start: 20201020, end: 20211213
  5. VITAMIN D3 [Concomitant]
     Active Substance: CHOLECALCIFEROL
     Dates: start: 20171116, end: 20210128
  6. DEXAMETHASONE [Concomitant]
     Active Substance: DEXAMETHASONE
     Dates: start: 20210114, end: 20210128
  7. DOXYCYCLINE HYCLATE [Concomitant]
     Active Substance: DOXYCYCLINE HYCLATE
     Dates: start: 20200917, end: 20210629
  8. Estrogen conjugated vag cream [Concomitant]
     Dates: start: 20171116
  9. Estrogen conjugated tablet [Concomitant]
     Dates: start: 20171116
  10. GABAPENTIN [Concomitant]
     Active Substance: GABAPENTIN
     Dates: start: 20200827, end: 20210914
  11. HYDROXYZINE HYDROCHLORIDE [Concomitant]
     Active Substance: HYDROXYZINE HYDROCHLORIDE
     Dates: start: 20171116, end: 20210128
  12. IBUPROFEN [Concomitant]
     Active Substance: IBUPROFEN
     Dates: start: 20200115, end: 20210413
  13. Ketorolac tromethamine Ophth. gtts [Concomitant]
     Dates: start: 20180313, end: 20210914
  14. Levoalbuterol HFA Inhaler [Concomitant]
     Dates: start: 20201020, end: 20211231
  15. Methylprednisolone tab [Concomitant]
     Dates: start: 20171011, end: 20210128
  16. Omega 3/DHA/EPA/Fish Oil [Concomitant]
     Dates: start: 20171116
  17. RABEPRAZOLE SODIUM [Concomitant]
     Active Substance: RABEPRAZOLE SODIUM
     Dates: start: 20171011, end: 20210914
  18. SIMVASTATIN [Concomitant]
     Active Substance: SIMVASTATIN
     Dates: start: 20171011, end: 20210914
  19. Tiotropium Br/Olodaterol [Concomitant]
     Dates: start: 20171116
  20. PROCTOFOAM HC [Concomitant]
     Active Substance: HYDROCORTISONE ACETATE\PRAMOXINE HYDROCHLORIDE
     Dates: start: 20171102

REACTIONS (3)
  - Oxygen saturation decreased [None]
  - Acute respiratory failure [None]
  - COVID-19 pneumonia [None]

NARRATIVE: CASE EVENT DATE: 20210117
